FAERS Safety Report 4864429-X (Version None)
Quarter: 2005Q4

REPORT INFORMATION
  Report Type: 
  Country: None (occurrence: None)
  Receive Date: 20051221
  Receipt Date: 20051221
  Transmission Date: 20060501
  Serious: Yes (Hospitalization)
  Sender: FDA-Public Use
  Company Number: None

PATIENT
  Age: 70 Year
  Sex: Female
  Weight: 86.1834 kg

DRUGS (1)
  1. BIAXIN [Suspect]
     Indication: BLEPHARITIS
     Dates: start: 20051208, end: 20051218

REACTIONS (7)
  - CHILLS [None]
  - CONFUSIONAL STATE [None]
  - CONVULSION [None]
  - LOSS OF CONSCIOUSNESS [None]
  - POSTICTAL STATE [None]
  - PYREXIA [None]
  - VOMITING [None]
